FAERS Safety Report 9339947 (Version 1)
Quarter: 2013Q2

REPORT INFORMATION
  Report Type: Spontaneous
  Country: GB (occurrence: None)
  Receive Date: 20130605
  Receipt Date: 20130605
  Transmission Date: 20140414
  Serious: Yes (Hospitalization, Other)
  Sender: FDA-Public Use
  Company Number: GER/UKI/13/0029777

PATIENT
  Sex: 0
  Weight: 98 kg

DRUGS (2)
  1. RISPERIDONE (RISPERIDONE) [Suspect]
     Indication: ANXIETY
     Dates: start: 2011, end: 2013
  2. CITALOPRAM (CITALOPRAM) [Concomitant]

REACTIONS (9)
  - Confusional state [None]
  - Emotional distress [None]
  - Memory impairment [None]
  - Irritability [None]
  - Chest pain [None]
  - Pain in extremity [None]
  - Psychotic disorder [None]
  - Syncope [None]
  - Thrombosis [None]
